FAERS Safety Report 7228943-4 (Version None)
Quarter: 2011Q1

REPORT INFORMATION
  Report Type: 
  Country: None (occurrence: None)
  Receive Date: 20110117
  Receipt Date: 20110111
  Transmission Date: 20110831
  Serious: Yes (Other)
  Sender: FDA-Public Use
  Company Number: FR-SANOFI-AVENTIS-2010SA077128

PATIENT
  Age: 74 Year
  Sex: Male

DRUGS (3)
  1. ARAVA [Suspect]
     Indication: RHEUMATOID ARTHRITIS
     Route: 048
     Dates: start: 20080201, end: 20100927
  2. ENBREL [Suspect]
     Indication: RHEUMATOID ARTHRITIS
     Route: 058
     Dates: start: 20040101
  3. ARAVA [Suspect]
     Route: 048
     Dates: start: 20100927

REACTIONS (9)
  - ORTHOSTATIC HYPOTENSION [None]
  - OSTEOARTHRITIS [None]
  - NORMAL PRESSURE HYDROCEPHALUS [None]
  - CONVULSION [None]
  - HYPOACUSIS [None]
  - HYPERTENSION [None]
  - EPILEPSY [None]
  - GAIT DISTURBANCE [None]
  - MALAISE [None]
